FAERS Safety Report 15930288 (Version 2)
Quarter: 2019Q1

REPORT INFORMATION
  Report Type: Spontaneous
  Country: CZ (occurrence: CZ)
  Receive Date: 20190207
  Receipt Date: 20190304
  Transmission Date: 20190417
  Serious: Yes (Other)
  Sender: FDA-Public Use
  Company Number: CZ-ROCHE-2259947

PATIENT
  Age: 61 Year
  Sex: Female

DRUGS (9)
  1. AVASTIN [Suspect]
     Active Substance: BEVACIZUMAB
     Indication: COLORECTAL CANCER
     Dosage: FIRST LINE
     Route: 065
     Dates: start: 20150515, end: 201604
  2. OXALIPLATIN. [Suspect]
     Active Substance: OXALIPLATIN
     Indication: COLORECTAL CANCER
     Route: 065
     Dates: start: 20150515, end: 201604
  3. FLUOROURACIL. [Suspect]
     Active Substance: FLUOROURACIL
     Indication: BREAST CANCER
     Dosage: THE DOSE WAS REDUCED ABOUT 50 %
     Route: 065
     Dates: start: 20160425
  4. IRINOTECAN [Suspect]
     Active Substance: IRINOTECAN
     Indication: COLORECTAL ADENOCARCINOMA
     Dosage: THE DOSE WAS REDUCED ABOUT 50 %
     Route: 065
     Dates: start: 20160425
  5. FOLINIC ACID [Suspect]
     Active Substance: LEUCOVORIN
     Indication: COLORECTAL CANCER
     Route: 065
     Dates: start: 20150515, end: 201604
  6. FOLINIC ACID [Suspect]
     Active Substance: LEUCOVORIN
     Dosage: THE DOSE WAS REDUCED ABOUT 50 %
     Route: 065
     Dates: start: 20160425, end: 201707
  7. FLUOROURACIL. [Suspect]
     Active Substance: FLUOROURACIL
     Indication: COLORECTAL CANCER
     Route: 065
     Dates: start: 20150515, end: 201604
  8. CAPECITABINE. [Concomitant]
     Active Substance: CAPECITABINE
     Route: 065
     Dates: start: 201604
  9. AVASTIN [Suspect]
     Active Substance: BEVACIZUMAB
     Dosage: SECONDLINE
     Route: 065
     Dates: start: 20160425, end: 201611

REACTIONS (7)
  - Off label use [Unknown]
  - Haematotoxicity [Unknown]
  - Vaginal fistula [Unknown]
  - Mucosal toxicity [Unknown]
  - Neurotoxicity [Unknown]
  - Stomatitis [Unknown]
  - Intentional product use issue [Unknown]

NARRATIVE: CASE EVENT DATE: 2016
